FAERS Safety Report 6438833-2 (Version None)
Quarter: 2009Q4

REPORT INFORMATION
  Report Type: 
  Country: None (occurrence: None)
  Receive Date: 20091113
  Receipt Date: 20091104
  Transmission Date: 20100525
  Serious: Yes (Other)
  Sender: FDA-Public Use
  Company Number: US-JNJFOC-20091101710

PATIENT
  Sex: Male
  Weight: 59.88 kg

DRUGS (4)
  1. FENTANYL TRANSDERMAL SYSTEM [Suspect]
     Indication: BACK PAIN
     Dosage: 2 PATCHES OF 25 UG/HR
     Route: 062
  2. HYTRIN [Concomitant]
     Route: 048
  3. MEVACOR [Concomitant]
     Indication: BLOOD CHOLESTEROL INCREASED
     Route: 048
  4. LIBRIUM [Concomitant]
     Indication: ABDOMINAL DISCOMFORT
     Route: 048

REACTIONS (8)
  - ABNORMAL LOSS OF WEIGHT [None]
  - BURNING SENSATION [None]
  - DECREASED APPETITE [None]
  - DEPRESSION [None]
  - GASTRIC DISORDER [None]
  - HYPERHIDROSIS [None]
  - INADEQUATE ANALGESIA [None]
  - WRONG TECHNIQUE IN DRUG USAGE PROCESS [None]
